FAERS Safety Report 19178801 (Version 1)
Quarter: 2021Q2

REPORT INFORMATION
  Report Type: Spontaneous
  Country: DE (occurrence: DE)
  Receive Date: 20210426
  Receipt Date: 20210426
  Transmission Date: 20210717
  Serious: Yes (Other)
  Sender: FDA-Public Use
  Company Number: DE-PFIZER INC-199647654PHANOV

PATIENT
  Age: 55 Year
  Sex: Male
  Weight: 75 kg

DRUGS (3)
  1. CLARITHROMYCIN. [Suspect]
     Active Substance: CLARITHROMYCIN
     Indication: ATYPICAL MYCOBACTERIAL INFECTION
     Dosage: 500 MG, 2X/DAY
     Route: 048
     Dates: start: 19950925, end: 19951020
  2. MYCOBUTIN [Suspect]
     Active Substance: RIFABUTIN
     Indication: ATYPICAL MYCOBACTERIAL INFECTION
     Dosage: 300 MG, 1X/DAY
     Route: 048
     Dates: start: 19950925, end: 19951020
  3. PROTIONAMIDE [Concomitant]
     Active Substance: PROTIONAMIDE
     Dosage: 0.25 MG, 3X/DAY
     Route: 048
     Dates: start: 19950925, end: 19951020

REACTIONS (4)
  - Alanine aminotransferase increased [Recovered/Resolved]
  - Hepatitis toxic [Recovered/Resolved]
  - Aspartate aminotransferase increased [Recovered/Resolved]
  - Platelet count decreased [Recovered/Resolved]

NARRATIVE: CASE EVENT DATE: 19951020
